APPROVED DRUG PRODUCT: MESTINON
Active Ingredient: PYRIDOSTIGMINE BROMIDE
Strength: 180MG
Dosage Form/Route: TABLET, EXTENDED RELEASE;ORAL
Application: N011665 | Product #001 | TE Code: AB
Applicant: BAUSCH HEALTH US LLC
Approved: Approved Prior to Jan 1, 1982 | RLD: Yes | RS: Yes | Type: RX